FAERS Safety Report 4412111-5 (Version None)
Quarter: 2004Q3

REPORT INFORMATION
  Report Type: 
  Country: None (occurrence: None)
  Receive Date: 20040730
  Receipt Date: 20040720
  Transmission Date: 20050211
  Serious: Yes (Other)
  Sender: FDA-Public Use
  Company Number: GB-GLAXOSMITHKLINE-B0339913A

PATIENT
  Age: 46 Year
  Sex: Female

DRUGS (5)
  1. AMOXICILLIN AND CLAVULANATE POTASSIUM [Suspect]
     Indication: BREAST ABSCESS
     Route: 048
     Dates: start: 20040525, end: 20040602
  2. MILK THISTLE SEED EXTRACT [Concomitant]
     Route: 065
  3. DANDELION [Concomitant]
     Route: 065
  4. IBUGEL [Concomitant]
     Route: 065
  5. LACTOBACILLUS ACIDOPHILUS [Concomitant]
     Route: 065

REACTIONS (5)
  - ARTHRALGIA [None]
  - CANDIDIASIS [None]
  - DIARRHOEA [None]
  - FATIGUE [None]
  - RASH [None]
